FAERS Safety Report 12239567 (Version 1)
Quarter: 2016Q2

REPORT INFORMATION
  Report Type: Spontaneous
  Country: CN (occurrence: CN)
  Receive Date: 20160405
  Receipt Date: 20160405
  Transmission Date: 20160815
  Serious: Yes (Hospitalization)
  Sender: FDA-Public Use
  Company Number: CN-BAYER-2016-060815

PATIENT
  Age: 64 Year
  Sex: Male

DRUGS (4)
  1. ENTECAVIR. [Concomitant]
     Active Substance: ENTECAVIR
     Indication: HEPATITIS B
     Dosage: 0.5 G, QD
  2. ADEFOVIR DIPIVOXIL. [Interacting]
     Active Substance: ADEFOVIR DIPIVOXIL
     Dosage: 10 MG, QD
  3. NEXAVAR [Suspect]
     Active Substance: SORAFENIB
     Indication: HEPATIC CANCER
     Dosage: 0.4 G, BID
     Dates: start: 201308
  4. NEXAVAR [Interacting]
     Active Substance: SORAFENIB
     Indication: HEPATIC CANCER
     Dosage: 0.6 G, QD (0.4G IN THE MORNING AND 0.2G IN THE EVENING)

REACTIONS (6)
  - Sputum abnormal [None]
  - Hypophosphataemia [None]
  - Palmar-plantar erythrodysaesthesia syndrome [None]
  - Cough [None]
  - Fatigue [None]
  - Musculoskeletal discomfort [None]

NARRATIVE: CASE EVENT DATE: 20141130
